FAERS Safety Report 6976994-7 (Version None)
Quarter: 2010Q3

REPORT INFORMATION
  Report Type: 
  Country: None (occurrence: None)
  Receive Date: 20100910
  Receipt Date: 20100829
  Transmission Date: 20110219
  Serious: Yes (Hospitalization)
  Sender: FDA-Public Use
  Company Number: US-WYE-H17208210

PATIENT
  Sex: Female
  Weight: 81.72 kg

DRUGS (2)
  1. PRISTIQ [Suspect]
     Indication: DEPRESSION
     Route: 048
     Dates: start: 20080101, end: 20100829
  2. PRISTIQ [Suspect]
     Indication: ANXIETY

REACTIONS (1)
  - HEPATIC FUNCTION ABNORMAL [None]
